FAERS Safety Report 17016535 (Version 1)
Quarter: 2019Q4

REPORT INFORMATION
  Report Type: Spontaneous
  Country: US (occurrence: US)
  Receive Date: 20191111
  Receipt Date: 20191111
  Transmission Date: 20200122
  Serious: Yes (Other)
  Sender: FDA-Public Use
  Company Number: US-HORIZON-PRE-0502-2019

PATIENT
  Age: 32 Year
  Sex: Female

DRUGS (5)
  1. THIAMINE. [Concomitant]
     Active Substance: THIAMINE
  2. CEFTRIAXONE. [Concomitant]
     Active Substance: CEFTRIAXONE
  3. WARFARIN [Concomitant]
     Active Substance: WARFARIN
  4. VALGANCYCLOVIR [Concomitant]
     Active Substance: VALGANCICLOVIR
  5. PREDNISONE. [Suspect]
     Active Substance: PREDNISONE
     Indication: PRODUCT USED FOR UNKNOWN INDICATION

REACTIONS (1)
  - Catatonia [Recovered/Resolved]
